FAERS Safety Report 17134833 (Version 1)
Quarter: 2019Q4

REPORT INFORMATION
  Report Type: Spontaneous
  Country: IT (occurrence: IT)
  Receive Date: 20191210
  Receipt Date: 20191210
  Transmission Date: 20200122
  Serious: Yes (Other)
  Sender: FDA-Public Use
  Company Number: IT-DSJP-DSE-2019-147484

PATIENT

DRUGS (1)
  1. LIXIANA [Suspect]
     Active Substance: EDOXABAN TOSYLATE
     Indication: PRODUCT USED FOR UNKNOWN INDICATION

REACTIONS (5)
  - Haematochezia [Unknown]
  - Chorioretinopathy [Unknown]
  - Chorioretinitis [Unknown]
  - Choroidal neovascularisation [Unknown]
  - Blood urine [Unknown]

NARRATIVE: CASE EVENT DATE: 2019
